FAERS Safety Report 8354889-4 (Version None)
Quarter: 2012Q2

REPORT INFORMATION
  Report Type: 
  Country: None (occurrence: None)
  Receive Date: 20120511
  Receipt Date: 20120507
  Transmission Date: 20120825
  Serious: Yes (Hospitalization)
  Sender: FDA-Public Use
  Company Number: US-BAYER-2012-045689

PATIENT
  Age: 18 Year
  Sex: Female
  Weight: 75.4 kg

DRUGS (13)
  1. IBUPROFEN [Concomitant]
     Indication: PAIN
  2. IMITREX [Concomitant]
     Dosage: 25 MG, UNK
  3. MACROBID [Concomitant]
     Indication: URINARY TRACT INFECTION
  4. ACETAMINOPHEN [Concomitant]
     Indication: PAIN
  5. MORPHINE [Concomitant]
     Dosage: 15 MG, UNK
  6. YASMIN [Suspect]
  7. MORPHINE [Concomitant]
     Indication: PAIN
  8. NAPROXEN (ALEVE) [Concomitant]
  9. IBUPROFEN (ADVIL) [Concomitant]
     Indication: PAIN
     Dosage: 400 MG, UNK
  10. SUMATRIPTAN [Concomitant]
  11. NASONEX [Concomitant]
  12. DROSPIRENONE AND ETHINYL ESTRADIOL [Suspect]
  13. IMITREX [Concomitant]
     Indication: MIGRAINE

REACTIONS (1)
  - PULMONARY EMBOLISM [None]
